FAERS Safety Report 10131272 (Version 1)
Quarter: 2014Q2

REPORT INFORMATION
  Report Type: Spontaneous
  Country: US (occurrence: US)
  Receive Date: 20140428
  Receipt Date: 20140428
  Transmission Date: 20141212
  Serious: No
  Sender: FDA-Public Use
  Company Number: US-PFIZER INC-2014116840

PATIENT
  Sex: Female

DRUGS (1)
  1. LYRICA [Suspect]
     Indication: SPINAL CORD INJURY
     Dosage: 150 MG, 3X/DAY

REACTIONS (2)
  - Myalgia [Unknown]
  - Oedema peripheral [Unknown]
